FAERS Safety Report 17334442 (Version 1)
Quarter: 2020Q1

REPORT INFORMATION
  Report Type: Report from Study
  Country: PL (occurrence: PL)
  Receive Date: 20200128
  Receipt Date: 20200128
  Transmission Date: 20200409
  Serious: Yes (Life-Threatening, Hospitalization, Other)
  Sender: FDA-Public Use
  Company Number: PL-EXELIXIS-XL18420026957

PATIENT
  Age: 71 Year
  Sex: Female
  Weight: 70 kg

DRUGS (13)
  1. KALIPOZ [Concomitant]
     Active Substance: POTASSIUM CHLORIDE
  2. POLPRAZOL [Concomitant]
     Active Substance: OMEPRAZOLE
  3. OTREX [Concomitant]
  4. CARDILOPIN [Concomitant]
  5. EUTHYROX [Concomitant]
     Active Substance: LEVOTHYROXINE SODIUM
  6. ATORIS [Concomitant]
     Active Substance: ATORVASTATIN CALCIUM
  7. ALFADIOL [Concomitant]
     Active Substance: ALFACALCIDOL
  8. CALPEROS [Concomitant]
  9. ENARENAL [Concomitant]
     Active Substance: ENALAPRIL
  10. HCT [Concomitant]
     Active Substance: HYDROCHLOROTHIAZIDE
  11. XL184 [Suspect]
     Active Substance: CABOZANTINIB
     Indication: THYROID CANCER
     Dosage: 60 MG, QD
     Route: 048
     Dates: start: 20191018
  12. CONCOR COR [Concomitant]
     Active Substance: BISOPROLOL FUMARATE
  13. TERTENSIF [Concomitant]
     Active Substance: INDAPAMIDE

REACTIONS (1)
  - Large intestine perforation [Not Recovered/Not Resolved]

NARRATIVE: CASE EVENT DATE: 20200122
